FAERS Safety Report 5425286-6 (Version None)
Quarter: 2007Q3

REPORT INFORMATION
  Report Type: 
  Country: None (occurrence: None)
  Receive Date: 20070824
  Receipt Date: 20070821
  Transmission Date: 20080115
  Serious: Yes (Hospitalization, Other)
  Sender: FDA-Public Use
  Company Number: US-GENENTECH-235924

PATIENT
  Sex: Male

DRUGS (7)
  1. OMALIZUMAB [Suspect]
     Indication: DRUG USE FOR UNKNOWN INDICATION
     Route: 064
  2. AMPICILLIN [Concomitant]
     Indication: DRUG USE FOR UNKNOWN INDICATION
     Route: 042
  3. FLUIDS (UNK INGREDIENTS) [Concomitant]
     Indication: RESPIRATORY DISTRESS
     Route: 042
  4. PHOTOTHERAPY [Concomitant]
     Indication: JAUNDICE
     Dates: start: 20070123, end: 20070128
  5. GENTAMICIN [Concomitant]
     Indication: DRUG USE FOR UNKNOWN INDICATION
     Route: 042
  6. HEPATITIS B VACCINE [Concomitant]
     Indication: DRUG USE FOR UNKNOWN INDICATION
     Dates: start: 20070127
  7. MEDICATION (UNK INGREDIENT) [Concomitant]
     Indication: RESPIRATORY DISTRESS

REACTIONS (7)
  - DRUG EXPOSURE DURING PREGNANCY [None]
  - EAR INFECTION [None]
  - GASTROOESOPHAGEAL REFLUX DISEASE [None]
  - JAUNDICE [None]
  - NEONATAL DISORDER [None]
  - PREMATURE BABY [None]
  - RESPIRATORY DISTRESS [None]
